FAERS Safety Report 6257838-8 (Version None)
Quarter: 2009Q3

REPORT INFORMATION
  Report Type: 
  Country: None (occurrence: None)
  Receive Date: 20090706
  Receipt Date: 20090626
  Transmission Date: 20100115
  Serious: Yes (Disabling, Other)
  Sender: FDA-Public Use
  Company Number: DE-ALLERGAN-0901543US

PATIENT
  Age: 52 Year
  Sex: Male
  Weight: 124.94 kg

DRUGS (21)
  1. BOTOX [Suspect]
     Indication: TORTICOLLIS
     Dosage: 500 UNITS, SINGLE
     Route: 030
     Dates: start: 20060710, end: 20060710
  2. BOTOX [Suspect]
     Indication: MYALGIA
     Dosage: 300 UNITS, SINGLE
     Route: 030
     Dates: start: 20030528, end: 20030528
  3. BOTOX [Suspect]
     Dosage: 400 UNITS, SINGLE
     Route: 030
     Dates: start: 20030829, end: 20030829
  4. BOTOX [Suspect]
     Dosage: 400 UNITS, SINGLE
     Route: 030
     Dates: start: 20040301, end: 20040301
  5. BOTOX [Suspect]
     Dosage: 400 UNITS, SINGLE
     Route: 030
     Dates: start: 20040624, end: 20040624
  6. BOTOX [Suspect]
     Dosage: 500 UNITS, SINGLE
     Route: 030
     Dates: start: 20041020, end: 20041020
  7. BOTOX [Suspect]
     Dosage: 500 UNITS, SINGLE
     Route: 030
     Dates: start: 20050308, end: 20050308
  8. BOTOX [Suspect]
     Dosage: 600 UNITS, SINGLE
     Route: 030
     Dates: start: 20050609, end: 20050609
  9. BOTOX [Suspect]
     Dosage: 600 UNITS, SINGLE
     Route: 030
     Dates: start: 20050915, end: 20050915
  10. BOTOX [Suspect]
     Dosage: 600 UNITS, SINGLE
     Route: 030
     Dates: start: 20051221, end: 20051221
  11. BOTOX [Suspect]
     Dosage: 600 UNITS, SINGLE
     Route: 030
     Dates: start: 20060330, end: 20060330
  12. TOPROL-XL [Concomitant]
     Indication: BLOOD PRESSURE
     Dosage: 50 MG, QD
     Route: 048
     Dates: start: 20030602, end: 20040922
  13. TOPROL-XL [Concomitant]
     Dosage: 100 MG, QD
     Route: 048
     Dates: start: 20040922, end: 20050525
  14. TOPROL-XL [Concomitant]
     Dosage: 150 MG, 100 MG QAM, 50 MG QHS
     Route: 048
     Dates: start: 20050525
  15. NABUMETONE [Concomitant]
     Indication: PAIN
     Dosage: 750 MG, Q12H WITH FOOD
     Route: 048
     Dates: start: 20041006
  16. VICODIN [Concomitant]
     Indication: PAIN
     Dosage: 5/500 MG, 2 PRN, MAX 6/D
     Route: 048
     Dates: start: 20050525
  17. DIAZEPAM [Concomitant]
     Dosage: 20 MG, Q8HR, PRN
     Route: 048
     Dates: start: 20060118
  18. FLEXERIL [Concomitant]
     Dosage: 5 MG, Q8HR, PRN
     Route: 048
     Dates: start: 20060118
  19. NAPROXEN [Concomitant]
     Dosage: 500 MG, Q12H WITH FOOD
     Route: 048
     Dates: start: 20060118
  20. WELLBUTRIN XL [Concomitant]
     Indication: DEPRESSION
     Dosage: 150 MG, QD
     Route: 048
     Dates: start: 20060118
  21. ZANAFLEX [Concomitant]
     Dosage: 4 MG, QHS
     Route: 048
     Dates: start: 20050525

REACTIONS (10)
  - BLOOD CALCIUM INCREASED [None]
  - DYSPHAGIA [None]
  - DYSPHONIA [None]
  - DYSPNOEA [None]
  - NAUSEA [None]
  - SPEECH DISORDER [None]
  - THERAPEUTIC RESPONSE DECREASED [None]
  - THYROID NEOPLASM [None]
  - VOCAL CORD PARALYSIS [None]
  - WEIGHT DECREASED [None]
